FAERS Safety Report 9300461 (Version 2)
Quarter: 2013Q2

REPORT INFORMATION
  Report Type: Spontaneous
  Country: CA (occurrence: None)
  Receive Date: 20121120
  Receipt Date: 20130628
  Transmission Date: 20140414
  Serious: Yes (Hospitalization)
  Sender: FDA-Public Use
  Company Number: 2012033909

PATIENT
  Age: 60 Year
  Sex: Female

DRUGS (3)
  1. PRIVIGEN (IMMUNE GLOBULIN INTRAVENOUS (HUMAN) 10% LIQUID) [Suspect]
     Indication: MILLER FISHER SYNDROME
     Dosage: (NOT OTHERWISE SPECIFIED)
     Route: 042
     Dates: start: 20120818, end: 20120819
  2. TYLENOL W/CODEINE N0.2 (PANADEINE CO) [Concomitant]
  3. ORAL CONTRACEPTIVE NOS (ORAL CONTRACEPTIVE NOS) [Concomitant]

REACTIONS (9)
  - Haematuria [None]
  - Guillain-Barre syndrome [None]
  - Headache [None]
  - Nausea [None]
  - Vomiting [None]
  - Haemoglobinuria [None]
  - Anti-erythrocyte antibody positive [None]
  - Coombs test positive [None]
  - Haemolysis [None]
